FAERS Safety Report 10302794 (Version 1)
Quarter: 2014Q3

REPORT INFORMATION
  Report Type: Spontaneous
  Country: GB (occurrence: GB)
  Receive Date: 20140714
  Receipt Date: 20140714
  Transmission Date: 20150326
  Serious: Yes (Life-Threatening, Hospitalization)
  Sender: FDA-Public Use
  Company Number: PHFR2014GB004899

PATIENT
  Age: 44 Year
  Sex: Female
  Weight: 130 kg

DRUGS (5)
  1. LEVOTHYROXINE [Concomitant]
     Active Substance: LEVOTHYROXINE
  2. OXYBUTYNIN [Concomitant]
     Active Substance: OXYBUTYNIN
  3. GILENYA [Suspect]
     Active Substance: FINGOLIMOD HYDROCHLORIDE
     Indication: MULTIPLE SCLEROSIS
     Dosage: 0.5 MG, QD
     Route: 048
     Dates: start: 20140403
  4. GABAPENTIN. [Concomitant]
     Active Substance: GABAPENTIN
  5. TRAMADOL [Concomitant]
     Active Substance: TRAMADOL

REACTIONS (3)
  - Dyspnoea [Unknown]
  - Pulmonary embolism [Recovered/Resolved]
  - Pleuritic pain [Unknown]

NARRATIVE: CASE EVENT DATE: 20140613
